FAERS Safety Report 7498369-7 (Version None)
Quarter: 2011Q2

REPORT INFORMATION
  Report Type: 
  Country: None (occurrence: None)
  Receive Date: 20110524
  Receipt Date: 20110425
  Transmission Date: 20111010
  Serious: Yes (Hospitalization)
  Sender: FDA-Public Use
  Company Number: US-BAYER-201030631NA

PATIENT
  Age: 20 Year
  Sex: Female
  Weight: 72.562 kg

DRUGS (4)
  1. EFFEXOR [Concomitant]
     Indication: DEPRESSION
     Dosage: 225 MG, QD
     Route: 048
     Dates: start: 20080101
  2. METFORMIN [Concomitant]
     Indication: OVARIAN DISORDER
     Dosage: 500 MG, BID
     Route: 048
     Dates: start: 20070101
  3. YAZ [Suspect]
     Indication: ORAL CONTRACEPTION
     Dosage: UNK
     Dates: start: 20070101, end: 20090101
  4. YAZ [Suspect]
     Indication: MENSTRUATION IRREGULAR

REACTIONS (4)
  - GALLBLADDER NON-FUNCTIONING [None]
  - INJURY [None]
  - ORGAN FAILURE [None]
  - CHOLECYSTITIS CHRONIC [None]
